FAERS Safety Report 23717640 (Version 1)
Quarter: 2024Q2

REPORT INFORMATION
  Report Type: Spontaneous
  Country: US (occurrence: None)
  Receive Date: 20240405
  Receipt Date: 20240405
  Transmission Date: 20240716
  Serious: Yes (Other)
  Sender: FDA-Public Use
  Company Number: None

PATIENT
  Age: 62 Year
  Sex: Female

DRUGS (18)
  1. POMALYST [Suspect]
     Active Substance: POMALIDOMIDE
     Indication: Plasma cell myeloma
     Dosage: 1 MG DAILY ORAL ?
     Route: 048
  2. CLONAZEPAM [Concomitant]
     Active Substance: CLONAZEPAM
  3. DULOXETINE [Concomitant]
     Active Substance: DULOXETINE
  4. HYDROCORTISONE [Concomitant]
     Active Substance: HYDROCORTISONE
  5. LEVOTHYROXINE [Concomitant]
     Active Substance: LEVOTHYROXINE\LEVOTHYROXINE SODIUM
  6. MORPHINE [Concomitant]
     Active Substance: MORPHINE
  7. VITAMIN B12 [Concomitant]
     Active Substance: CYANOCOBALAMIN
  8. ACYCLOVIR [Concomitant]
     Active Substance: ACYCLOVIR
  9. ONDANSETRON [Concomitant]
     Active Substance: ONDANSETRON
  10. CLARITIN [Concomitant]
     Active Substance: LORATADINE
  11. ZOMETA [Concomitant]
     Active Substance: ZOLEDRONIC ACID
  12. CYCLOBENZAPRINE [Concomitant]
     Active Substance: CYCLOBENZAPRINE
  13. PANTOPRAZOLE [Concomitant]
     Active Substance: PANTOPRAZOLE
  14. ASPIRIN [Concomitant]
     Active Substance: ASPIRIN
  15. MAGNESIUM [Concomitant]
     Active Substance: MAGNESIUM
  16. TYLENOL [Concomitant]
     Active Substance: ACETAMINOPHEN
  17. VITAMIN D3 [Concomitant]
     Active Substance: CHOLECALCIFEROL
  18. ZINC [Concomitant]
     Active Substance: PYRITHIONE ZINC\ZINC\ZINC CHLORIDE

REACTIONS (2)
  - Disease progression [None]
  - Plasma cell myeloma [None]

NARRATIVE: CASE EVENT DATE: 20240315
